FAERS Safety Report 9816905 (Version 1)
Quarter: 2014Q1

REPORT INFORMATION
  Report Type: Spontaneous
  Country: US (occurrence: US)
  Receive Date: 20140114
  Receipt Date: 20140114
  Transmission Date: 20141002
  Serious: No
  Sender: FDA-Public Use
  Company Number: US-ENDO PHARMACEUTICALS INC.-PERC20130025

PATIENT
  Sex: Female
  Weight: 79 kg

DRUGS (7)
  1. PERCOCET [Suspect]
     Indication: PAIN
     Dosage: UNKNOWN
     Route: 048
     Dates: start: 2012
  2. PERCOCET [Suspect]
     Indication: HIP FRACTURE
  3. LYRICA [Concomitant]
     Indication: ARTHRITIS
     Route: 048
     Dates: start: 2011
  4. IMDUR [Concomitant]
     Indication: CARDIAC DISORDER
     Route: 048
  5. DIGITEK [Concomitant]
     Indication: CARDIAC DISORDER
     Route: 048
  6. PLAVIX [Concomitant]
     Indication: CARDIAC DISORDER
     Route: 048
  7. INSULIN [Concomitant]
     Indication: DIABETES MELLITUS
     Route: 065

REACTIONS (1)
  - Drug ineffective [Unknown]
